FAERS Safety Report 16002315 (Version 2)
Quarter: 2019Q1

REPORT INFORMATION
  Report Type: Spontaneous
  Country: CA (occurrence: CA)
  Receive Date: 20190225
  Receipt Date: 20190304
  Transmission Date: 20190418
  Serious: Yes (Other)
  Sender: FDA-Public Use
  Company Number: CA-BIOMARINAP-CA-2018-120189

PATIENT
  Sex: Female
  Weight: 23.2 kg

DRUGS (2)
  1. NAGLAZYME [Suspect]
     Active Substance: GALSULFASE
     Indication: MUCOPOLYSACCHARIDOSIS VI
     Dosage: 1 MILLIGRAM/KILOGRAM, QW
     Route: 042
     Dates: start: 2012
  2. AERIUS                             /01009701/ [Concomitant]
     Active Substance: EBASTINE
     Indication: PREMEDICATION
     Dosage: 1.25 MILLIGRAM, SINGLE
     Route: 048

REACTIONS (4)
  - Carpal tunnel syndrome [Unknown]
  - Paraesthesia [Unknown]
  - Joint stiffness [Unknown]
  - Bone deformity [Unknown]
